FAERS Safety Report 13115234 (Version 2)
Quarter: 2017Q1

REPORT INFORMATION
  Report Type: Spontaneous
  Country: US (occurrence: US)
  Receive Date: 20170113
  Receipt Date: 20170131
  Transmission Date: 20170428
  Serious: Yes (Hospitalization)
  Sender: FDA-Public Use
  Company Number: US-ACTELION-A-NJ2017-148141

PATIENT
  Age: 13 Year
  Sex: Male

DRUGS (20)
  1. OXYGEN. [Concomitant]
     Active Substance: OXYGEN
     Dosage: 1 DOSE AS DIRECTED
     Dates: start: 20140210
  2. DIAZEPAM. [Concomitant]
     Active Substance: DIAZEPAM
     Dosage: 15 MG, PRN
     Route: 048
     Dates: start: 20140210
  3. VALPROIC ACID. [Concomitant]
     Active Substance: VALPROIC ACID
     Dosage: 5 ML, TID
     Route: 048
     Dates: start: 20140210
  4. RISPERIDONE. [Concomitant]
     Active Substance: RISPERIDONE
     Dosage: 0.5 MG, TID
     Route: 048
     Dates: start: 20140210
  5. ZAVESCA [Suspect]
     Active Substance: MIGLUSTAT
     Indication: NIEMANN-PICK DISEASE
     Dosage: 100 MG, 1AM,1PM, 2 QHS
     Route: 048
     Dates: start: 20130225
  6. PATANASE [Concomitant]
     Active Substance: OLOPATADINE HYDROCHLORIDE
     Dosage: 1 SPRAY EACH NOSTRIL, QD
     Route: 045
     Dates: start: 20140210
  7. REGLAN [Concomitant]
     Active Substance: METOCLOPRAMIDE HYDROCHLORIDE
     Dosage: 3.5 MG, TID
     Route: 048
     Dates: start: 20160113
  8. LORAZEPAM. [Concomitant]
     Active Substance: LORAZEPAM
     Dosage: 1 ML, PRN
     Route: 048
     Dates: start: 20140210
  9. CLONAZEPAM. [Concomitant]
     Active Substance: CLONAZEPAM
     Dosage: 0.25 MG, BID, PRN
     Dates: start: 20140210
  10. ZOMETA [Concomitant]
     Active Substance: ZOLEDRONIC ACID
     Dosage: 4 MG, QD AT 6 PM
     Route: 042
     Dates: start: 20161212
  11. CULTURELLE FOR KIDS [Concomitant]
     Dosage: 1 PACK, QD
     Route: 048
     Dates: start: 20140210
  12. DEPAKENE [Concomitant]
     Active Substance: VALPROIC ACID
     Dosage: 7.5 ML AM, 5 ML PM,
  13. METOCLOPRAMIDE. [Concomitant]
     Active Substance: METOCLOPRAMIDE
     Dosage: 2.5 UNK, UNK
  14. PROTRIPTYLINE [Concomitant]
     Active Substance: PROTRIPTYLINE
     Dosage: 5 MG, UNK
  15. FLUTICASONE. [Concomitant]
     Active Substance: FLUTICASONE
     Dosage: 2 SPRAYS EACH NOSTRIL, QD
     Route: 045
     Dates: start: 20140210
  16. TRANSDERM [Concomitant]
     Dosage: 1 PATCH AS DIRECTED
     Route: 061
     Dates: start: 20140210
  17. CYPROHEPATADINE [Concomitant]
     Active Substance: CYPROHEPTADINE HYDROCHLORIDE
     Dosage: 7.5 ML, BID
  18. ONFI [Concomitant]
     Active Substance: CLOBAZAM
     Dosage: 4 ML, TID
     Route: 048
     Dates: start: 20160215
  19. MIRALAX [Concomitant]
     Active Substance: POLYETHYLENE GLYCOL 3350
     Dosage: 1 DOSE, QD
     Route: 048
     Dates: start: 20140210
  20. BANZEL [Concomitant]
     Active Substance: RUFINAMIDE
     Dosage: 400 MG, BID
     Dates: start: 20150119

REACTIONS (1)
  - Osteoporosis [Recovered/Resolved]
